FAERS Safety Report 7311623-4 (Version None)
Quarter: 2011Q1

REPORT INFORMATION
  Report Type: 
  Country: None (occurrence: None)
  Receive Date: 20110224
  Receipt Date: 20110217
  Transmission Date: 20110831
  Serious: Yes (Hospitalization, Other)
  Sender: FDA-Public Use
  Company Number: US-US-EMD SERONO, INC.-7037483

PATIENT
  Sex: Female

DRUGS (4)
  1. PROCARDIA [Concomitant]
  2. REBIF [Suspect]
     Indication: RELAPSING-REMITTING MULTIPLE SCLEROSIS
     Dates: start: 20060101, end: 20060101
  3. HYZAAR [Concomitant]
     Indication: HYPERTENSION
  4. REBIF [Suspect]
     Dates: start: 20060101, end: 20060701

REACTIONS (4)
  - GRAND MAL CONVULSION [None]
  - PSYCHOTIC DISORDER [None]
  - HOMICIDAL IDEATION [None]
  - CONVERSION DISORDER [None]
